FAERS Safety Report 5484328-2 (Version None)
Quarter: 2007Q4

REPORT INFORMATION
  Report Type: 
  Country: None (occurrence: None)
  Receive Date: 20071010
  Receipt Date: 20070713
  Transmission Date: 20080405
  Serious: Yes (Other)
  Sender: FDA-Public Use
  Company Number: 2007EN000248

PATIENT
  Sex: Female

DRUGS (3)
  1. OPANA ER [Suspect]
     Indication: DRUG USE FOR UNKNOWN INDICATION
  2. KADIAN [Concomitant]
  3. ACTIQ [Concomitant]

REACTIONS (2)
  - DRUG DIVERSION [None]
  - INTENTIONAL DRUG MISUSE [None]
